FAERS Safety Report 7884051-0 (Version None)
Quarter: 2011Q4

REPORT INFORMATION
  Report Type: 
  Country: None (occurrence: None)
  Receive Date: 20111102
  Receipt Date: 20111025
  Transmission Date: 20120403
  Serious: Yes (Hospitalization, Other)
  Sender: FDA-Public Use
  Company Number: PHHY2011US25369

PATIENT
  Sex: Female

DRUGS (4)
  1. NEXIUM [Concomitant]
     Indication: GASTROINTESTINAL PAIN
     Dosage: 40 MG, QD
     Route: 048
  2. SULFAMETHOXAZOLE [Concomitant]
     Indication: PNEUMOCYSTIS JIROVECI PNEUMONIA
     Dosage: 160 MG, BID ON MONDAY AND TUESDAY ONLY
  3. EXJADE [Suspect]
     Indication: APLASTIC ANAEMIA
     Dosage: 2000 MG, QD
     Route: 048
  4. NEUPOGEN [Concomitant]
     Indication: NEUTROPENIA
     Dosage: 300 UG, TIW
     Route: 058

REACTIONS (7)
  - PLATELET COUNT DECREASED [None]
  - EAR INFECTION [None]
  - VISION BLURRED [None]
  - METRORRHAGIA [None]
  - PYREXIA [None]
  - NASOPHARYNGITIS [None]
  - PAIN [None]
